FAERS Safety Report 19194931 (Version 1)
Quarter: 2021Q2

REPORT INFORMATION
  Report Type: Spontaneous
  Country: US (occurrence: US)
  Receive Date: 20210429
  Receipt Date: 20210429
  Transmission Date: 20210717
  Serious: Yes (Hospitalization)
  Sender: FDA-Public Use
  Company Number: None

PATIENT
  Age: 81 Year
  Sex: Male
  Weight: 65.8 kg

DRUGS (1)
  1. APIXABAN [Suspect]
     Active Substance: APIXABAN
     Indication: ATRIAL FIBRILLATION
     Route: 048

REACTIONS (5)
  - Cerebral haemorrhage [None]
  - Hemiparesis [None]
  - Facial paralysis [None]
  - Gaze palsy [None]
  - Basal ganglia haemorrhage [None]

NARRATIVE: CASE EVENT DATE: 20210428
